FAERS Safety Report 9296111 (Version 2)
Quarter: 2013Q3

REPORT INFORMATION
  Report Type: Spontaneous
  Country: GB (occurrence: GB)
  Receive Date: 20130517
  Receipt Date: 20130722
  Transmission Date: 20140515
  Serious: Yes (Other)
  Sender: FDA-Public Use
  Company Number: GB-009507513-1305GBR010441

PATIENT
  Age: 61 Year
  Sex: Female
  Weight: 62 kg

DRUGS (11)
  1. DEXAMETHASONE TABLETS BP 500MCG [Suspect]
     Indication: PLASMA CELL MYELOMA
     Dosage: UNK
     Route: 048
     Dates: start: 20130318
  2. VELCADE [Suspect]
     Indication: PLASMA CELL MYELOMA
     Dosage: UNK
     Route: 058
     Dates: start: 20130318, end: 20130408
  3. ACYCLOVIR [Concomitant]
     Dosage: 400 MG, UNK
     Dates: start: 20130318
  4. ALLOPURINOL [Concomitant]
     Dosage: 300 MG, UNK
     Dates: start: 20130318
  5. SULFAMETHOXAZOLE (+) TRIMETHOPRIM [Concomitant]
     Dosage: 480 MG, UNK
     Dates: start: 20130318
  6. CYCLOPHOSPHAMIDE [Concomitant]
     Dosage: UNK
     Dates: start: 20130422
  7. ENOXAPARIN SODIUM [Concomitant]
     Dosage: 40 MG, UNK
     Dates: start: 20130318
  8. FLUCONAZOLE [Concomitant]
     Dosage: 50 MG, UNK
     Dates: start: 20130318
  9. LANSOPRAZOLE [Concomitant]
     Dosage: 30 MG, UNK
     Dates: start: 20130318
  10. METOCLOPRAMIDE [Concomitant]
     Dosage: UNK
     Dates: start: 20130318
  11. ZOPICLONE [Concomitant]
     Dosage: UNK
     Dates: start: 20130321

REACTIONS (3)
  - Bone marrow failure [Unknown]
  - Glucose tolerance test abnormal [Unknown]
  - Liver function test abnormal [Unknown]
